FAERS Safety Report 20965181 (Version 1)
Quarter: 2022Q2

REPORT INFORMATION
  Report Type: Spontaneous
  Country: BR (occurrence: None)
  Receive Date: 20220616
  Receipt Date: 20220616
  Transmission Date: 20220721
  Serious: Yes (Other)
  Sender: FDA-Public Use
  Company Number: BR-ROCHE-3116299

PATIENT
  Age: 32 Year
  Sex: Female
  Weight: 56.2 kg

DRUGS (1)
  1. OCREVUS [Suspect]
     Active Substance: OCRELIZUMAB
     Indication: Multiple sclerosis
     Route: 065

REACTIONS (3)
  - Pharyngeal oedema [Recovered/Resolved]
  - Malaise [Unknown]
  - Pruritus [Unknown]

NARRATIVE: CASE EVENT DATE: 20201118
